FAERS Safety Report 8977904 (Version 1)
Quarter: 2012Q4

REPORT INFORMATION
  Report Type: Report from Study
  Country: JP (occurrence: JP)
  Receive Date: 20121219
  Receipt Date: 20121219
  Transmission Date: 20130627
  Serious: Yes (Other)
  Sender: FDA-Public Use
  Company Number: JP-VERTEX PHARMACEUTICALS INC.-2012-026284

PATIENT
  Age: 64 Year
  Sex: Male

DRUGS (7)
  1. VX-950 (TELAPREVIR) [Suspect]
     Indication: CHRONIC HEPATITIS C
     Dosage: 2250 mg, qd
     Route: 048
     Dates: start: 20120620, end: 20120910
  2. RIBAVIRIN [Suspect]
     Indication: CHRONIC HEPATITIS C
     Dosage: 600 mg, qd
     Route: 048
     Dates: start: 20120620, end: 20121008
  3. RIBAVIRIN [Suspect]
     Dosage: 800 mg, qd
     Route: 048
     Dates: start: 20121009, end: 20121210
  4. PEGINTRON [Suspect]
     Indication: CHRONIC HEPATITIS C
     Dosage: 1.5 ?g/kg, qw
     Route: 058
     Dates: start: 20120620, end: 20120925
  5. PEGINTRON [Suspect]
     Dosage: 0.9 ?g/kg, qw
     Route: 058
     Dates: start: 20121002, end: 20121204
  6. LOXONIN [Concomitant]
     Dosage: 60 mg, prn
     Route: 048
     Dates: start: 20120704
  7. MUCOSTA [Concomitant]
     Dosage: 100 mg, prn
     Route: 048
     Dates: start: 20120704

REACTIONS (1)
  - Retinopathy [Not Recovered/Not Resolved]
